FAERS Safety Report 16753919 (Version 1)
Quarter: 2019Q3

REPORT INFORMATION
  Report Type: Spontaneous
  Country: GB (occurrence: GB)
  Receive Date: 20190829
  Receipt Date: 20190829
  Transmission Date: 20191005
  Serious: Yes (Hospitalization, Other)
  Sender: FDA-Public Use
  Company Number: GB-TEVA-2019-GB-1097990

PATIENT
  Age: 90 Year
  Sex: Female
  Weight: 43.1 kg

DRUGS (6)
  1. CIPROFLOXACIN. [Suspect]
     Active Substance: CIPROFLOXACIN
     Indication: CHOLECYSTITIS
     Dosage: 1000 MG
     Route: 048
     Dates: start: 20190617, end: 20190628
  2. FLUVASTATIN [Concomitant]
     Active Substance: FLUVASTATIN SODIUM
  3. LANSOPRAZOLE. [Concomitant]
     Active Substance: LANSOPRAZOLE
  4. NEDITOL [Concomitant]
     Active Substance: TOLTERODINE
  5. PARACETAMOL [Concomitant]
     Active Substance: ACETAMINOPHEN
  6. LACTULOSE. [Concomitant]
     Active Substance: LACTULOSE

REACTIONS (1)
  - Cholestasis [Recovering/Resolving]
